FAERS Safety Report 10735785 (Version 1)
Quarter: 2015Q1

REPORT INFORMATION
  Report Type: Spontaneous
  Country: US (occurrence: None)
  Receive Date: 20150122
  Receipt Date: 20150122
  Transmission Date: 20150721
  Serious: No
  Sender: FDA-Public Use
  Company Number: None

PATIENT
  Age: 44 Year
  Sex: Female

DRUGS (1)
  1. NEULASTA [Suspect]
     Active Substance: PEGFILGRASTIM
     Indication: TARGETED CANCER THERAPY
     Route: 058
     Dates: start: 20141204

REACTIONS (1)
  - Bone pain [None]

NARRATIVE: CASE EVENT DATE: 20141206
